FAERS Safety Report 22178761 (Version 2)
Quarter: 2023Q2

REPORT INFORMATION
  Report Type: Spontaneous
  Country: BR (occurrence: BR)
  Receive Date: 20230405
  Receipt Date: 20230407
  Transmission Date: 20230722
  Serious: Yes (Other)
  Sender: FDA-Public Use
  Company Number: BR-ABBVIE-4716377

PATIENT
  Age: 31 Year
  Sex: Female
  Weight: 82 kg

DRUGS (2)
  1. SKYRIZI [Suspect]
     Active Substance: RISANKIZUMAB-RZAA
     Indication: Psoriasis
     Dosage: FORM STRENGTH: 75 MILLIGRAM
     Route: 058
     Dates: start: 2022
  2. CLONAZEPAM-R [Concomitant]
     Indication: Sleep disorder
     Route: 048
     Dates: start: 202212

REACTIONS (7)
  - Thrombosis [Recovered/Resolved]
  - Road traffic accident [Recovered/Resolved]
  - Skin discolouration [Recovered/Resolved]
  - Joint injury [Unknown]
  - Depression [Recovering/Resolving]
  - Peripheral swelling [Recovered/Resolved]
  - Anxiety [Recovering/Resolving]

NARRATIVE: CASE EVENT DATE: 20220701
